FAERS Safety Report 7349395-X (Version None)
Quarter: 2011Q1

REPORT INFORMATION
  Report Type: 
  Country: None (occurrence: None)
  Receive Date: 20110314
  Receipt Date: 20100909
  Transmission Date: 20110831
  Serious: No
  Sender: FDA-Public Use
  Company Number: US-ABBOTT-10P-163-0668003-00

PATIENT
  Sex: Male
  Weight: 104.42 kg

DRUGS (8)
  1. IRON [Concomitant]
     Indication: ANAEMIA
     Dosage: T
     Dates: start: 20080101
  2. DEPAKOTE [Suspect]
     Indication: DEPRESSION
     Route: 048
     Dates: start: 20100601, end: 20100701
  3. DEPAKOTE [Suspect]
     Indication: RESTLESS LEGS SYNDROME
     Dosage: TAPER DOWN
     Route: 048
     Dates: start: 20100801, end: 20100907
  4. LIPITOR [Concomitant]
     Indication: BLOOD CHOLESTEROL
     Route: 048
  5. XANAX [Concomitant]
     Indication: ANXIETY
     Route: 048
  6. DEPAKOTE [Suspect]
     Indication: ANXIETY
     Dosage: 1 GM (500MGX2)
     Route: 048
     Dates: start: 20100701, end: 20100801
  7. NEXIUM [Concomitant]
     Indication: GASTROOESOPHAGEAL REFLUX DISEASE
     Dosage: UNKNOWN STRENGTH
     Route: 048
  8. BENICAR [Concomitant]
     Indication: HYPERTENSION
     Route: 048

REACTIONS (10)
  - CONFUSIONAL STATE [None]
  - BRADYPHRENIA [None]
  - MYALGIA [None]
  - DRUG INEFFECTIVE [None]
  - SINUSITIS [None]
  - HYPERHIDROSIS [None]
  - INFLUENZA LIKE ILLNESS [None]
  - MIGRAINE [None]
  - DIARRHOEA [None]
  - LETHARGY [None]
